FAERS Safety Report 13597718 (Version 1)
Quarter: 2017Q2

REPORT INFORMATION
  Report Type: Spontaneous
  Country: US (occurrence: US)
  Receive Date: 20170531
  Receipt Date: 20170531
  Transmission Date: 20170830
  Serious: Yes (Life-Threatening, Other)
  Sender: FDA-Public Use
  Company Number: None

PATIENT
  Age: 2 Year
  Sex: Male

DRUGS (1)
  1. FLUOCINOLONE ACETONIDE 0.01% [Suspect]
     Active Substance: FLUOCINOLONE ACETONIDE
     Indication: RASH
     Route: 061

REACTIONS (2)
  - Product label issue [None]
  - Food allergy [None]

NARRATIVE: CASE EVENT DATE: 20170530
